FAERS Safety Report 23942848 (Version 2)
Quarter: 2024Q2

REPORT INFORMATION
  Report Type: Spontaneous
  Country: US (occurrence: US)
  Receive Date: 20240605
  Receipt Date: 20240610
  Transmission Date: 20240716
  Serious: Yes (Other)
  Sender: FDA-Public Use
  Company Number: US-JNJFOC-20240587014

PATIENT
  Sex: Female

DRUGS (1)
  1. TOPAMAX [Suspect]
     Active Substance: TOPIRAMATE
     Indication: Product used for unknown indication
     Route: 048

REACTIONS (7)
  - Suicidal ideation [Unknown]
  - Borderline personality disorder [Unknown]
  - Fatigue [Unknown]
  - Paraesthesia [Unknown]
  - Muscle twitching [Unknown]
  - Myalgia [Unknown]
  - Headache [Unknown]
